FAERS Safety Report 10267490 (Version 1)
Quarter: 2014Q2

REPORT INFORMATION
  Report Type: Spontaneous
  Country: US (occurrence: None)
  Receive Date: 20140626
  Receipt Date: 20140626
  Transmission Date: 20141212
  Serious: No
  Sender: FDA-Public Use
  Company Number: None

PATIENT
  Age: 50 Year
  Sex: Female

DRUGS (3)
  1. TECFIDERA 240MG BIOGEN [Suspect]
     Indication: PLASMA CELL MYELOMA
     Route: 048
     Dates: start: 20140520, end: 20140625
  2. LISINOPRIL [Concomitant]
  3. OMEPRAZOLE [Concomitant]

REACTIONS (2)
  - Abdominal pain [None]
  - Nausea [None]
